FAERS Safety Report 9289354 (Version 1)
Quarter: 2013Q2

REPORT INFORMATION
  Report Type: Spontaneous
  Country: US (occurrence: US)
  Receive Date: 20130514
  Receipt Date: 20130514
  Transmission Date: 20140414
  Serious: No
  Sender: FDA-Public Use
  Company Number: US-009507513-2012SP027463

PATIENT
  Age: 92 Year
  Sex: Female

DRUGS (9)
  1. MIRALAX [Suspect]
     Indication: CONSTIPATION
     Dosage: 17 G, QD
     Route: 048
     Dates: start: 201204, end: 201206
  2. MIRALAX [Suspect]
     Indication: MEDICAL OBSERVATION
  3. LOPRESSOR [Concomitant]
     Indication: HEART RATE INCREASED
     Dosage: UNK, UNKNOWN
  4. LEVOTHYROXINE SODIUM [Concomitant]
     Indication: THYROID DISORDER
     Dosage: 25 MG, QD
  5. NAPROXEN [Concomitant]
     Indication: SPINAL COLUMN STENOSIS
     Dosage: UNK, UNKNOWN
  6. NAPROXEN [Concomitant]
     Indication: OSTEOPOROSIS
  7. ATIVAN [Concomitant]
     Indication: POST-TRAUMATIC STRESS DISORDER
     Dosage: 1 DF, PRN
  8. VITAMIN D (UNSPECIFIED) [Concomitant]
     Indication: PRODUCT USED FOR UNKNOWN INDICATION
     Dosage: UNK, UNKNOWN
  9. CALCIUM (UNSPECIFIED) [Concomitant]
     Indication: PRODUCT USED FOR UNKNOWN INDICATION
     Dosage: UNK, UNKNOWN

REACTIONS (3)
  - Diarrhoea [Unknown]
  - Drug effect decreased [Unknown]
  - Incorrect drug administration duration [Unknown]
